FAERS Safety Report 8270854-X (Version None)
Quarter: 2012Q2

REPORT INFORMATION
  Report Type: 
  Country: None (occurrence: None)
  Receive Date: 20120410
  Receipt Date: 20120410
  Transmission Date: 20120825
  Serious: Yes (Other)
  Sender: FDA-Public Use
  Company Number: None

PATIENT
  Age: 28 Year
  Sex: Male
  Weight: 120.2 kg

DRUGS (17)
  1. MILK OF MAGNESIA TAB [Concomitant]
  2. ACETAMINOPHEN [Concomitant]
  3. OLANZAPINE [Concomitant]
  4. CLOZAPINE [Suspect]
     Indication: PSYCHOTIC DISORDER
     Dosage: 100.0 MG
     Route: 048
     Dates: start: 20120126, end: 20120326
  5. MULTI-VITAMINS [Concomitant]
  6. DOCUSATE [Concomitant]
  7. LEVOTHYROXINE SODIUM [Concomitant]
  8. FLUPHENAZINE [Concomitant]
  9. CLOZAPINE [Concomitant]
     Dosage: 125 MG
     Route: 048
     Dates: start: 20120126, end: 20120326
  10. WART REMOVER [Concomitant]
  11. CLONAZEPAM [Concomitant]
  12. QUETIAPINE [Concomitant]
  13. LORAZEPAM [Concomitant]
  14. DIPHENHYDRAMINE HCL [Concomitant]
  15. AMMONIUM LACTATE LOTION [Concomitant]
  16. LITHIUM CARBONATE [Concomitant]
  17. BETAMETHASONE VALERATE OINTMENT [Concomitant]

REACTIONS (2)
  - NEUTROPHIL COUNT DECREASED [None]
  - WHITE BLOOD CELL COUNT DECREASED [None]
